FAERS Safety Report 13944087 (Version 1)
Quarter: 2017Q3

REPORT INFORMATION
  Report Type: Report from Study
  Country: GB (occurrence: GB)
  Receive Date: 20170907
  Receipt Date: 20170907
  Transmission Date: 20171128
  Serious: Yes (Other)
  Sender: FDA-Public Use
  Company Number: GB-ROCHE-1988009

PATIENT
  Age: 75 Year
  Sex: Female

DRUGS (3)
  1. RITUXIMAB. [Suspect]
     Active Substance: RITUXIMAB
     Indication: B-CELL LYMPHOMA
     Dosage: 2/ONCE EVERY 28 DAYS.
     Route: 065
     Dates: start: 20130618, end: 20130618
  2. RITUXIMAB. [Suspect]
     Active Substance: RITUXIMAB
     Dosage: 2/ONCE EVERY28 DAYS.
     Route: 065
     Dates: start: 20130926, end: 20151230
  3. RITUXIMAB. [Suspect]
     Active Substance: RITUXIMAB
     Dosage: 4/ONCE EVERY 28 DAYS.
     Route: 065
     Dates: start: 20130717, end: 20130814

REACTIONS (1)
  - Basal cell carcinoma [Recovered/Resolved]

NARRATIVE: CASE EVENT DATE: 20170810
